FAERS Safety Report 8766179 (Version 2)
Quarter: 2012Q4

REPORT INFORMATION
  Report Type: Report from Study
  Country: CA (occurrence: CA)
  Receive Date: 20120904
  Receipt Date: 20121003
  Transmission Date: 20130627
  Serious: Yes (Life-Threatening, Hospitalization, Other)
  Sender: FDA-Public Use
  Company Number: CA-ROCHE-1036138

PATIENT
  Age: 69 Year
  Sex: Female
  Weight: 79.45 kg

DRUGS (8)
  1. ROACTEMRA [Suspect]
     Indication: RHEUMATOID ARTHRITIS
     Route: 042
     Dates: start: 20110914, end: 20120103
  2. ROACTEMRA [Suspect]
     Route: 042
     Dates: start: 20111011, end: 20120103
  3. ROACTEMRA [Suspect]
     Route: 042
     Dates: start: 20120724, end: 20120918
  4. CIPRALEX [Concomitant]
  5. PANTOLOC [Concomitant]
  6. DOMPERIDONE [Concomitant]
  7. DIAZEPAM [Concomitant]
  8. TRAZALON [Concomitant]

REACTIONS (9)
  - Gastroenteritis salmonella [Recovered/Resolved]
  - Rheumatoid arthritis [Not Recovered/Not Resolved]
  - Infection [Unknown]
  - Colostomy [Not Recovered/Not Resolved]
  - Arthralgia [Unknown]
  - Arthralgia [Unknown]
  - Joint swelling [Unknown]
  - Pain [Unknown]
  - Urticaria [Recovering/Resolving]
